FAERS Safety Report 5519491-8 (Version None)
Quarter: 2007Q4

REPORT INFORMATION
  Report Type: 
  Country: None (occurrence: None)
  Receive Date: 20071116
  Receipt Date: 20071106
  Transmission Date: 20080405
  Serious: Yes (Hospitalization)
  Sender: FDA-Public Use
  Company Number: US-ELI_LILLY_AND_COMPANY-US200711001510

PATIENT
  Sex: Female

DRUGS (3)
  1. HUMULIN L [Suspect]
     Dates: start: 19860101, end: 20061201
  2. HUMULIN N [Suspect]
     Indication: DIABETES MELLITUS
     Dosage: 45 U, UNK
     Dates: start: 20070201
  3. LANTUS [Concomitant]
     Dates: start: 20061201, end: 20070201

REACTIONS (17)
  - ABDOMINAL DISTENSION [None]
  - ABDOMINAL PAIN UPPER [None]
  - BACK PAIN [None]
  - BLADDER NECK OBSTRUCTION [None]
  - CARDIAC FAILURE CONGESTIVE [None]
  - DYSURIA [None]
  - GASTROINTESTINAL INFECTION [None]
  - GASTROOESOPHAGEAL REFLUX DISEASE [None]
  - LIVER DISORDER [None]
  - MALAISE [None]
  - MICTURITION URGENCY [None]
  - PNEUMONIA [None]
  - POLYP [None]
  - PULMONARY OEDEMA [None]
  - RENAL PAIN [None]
  - SLEEP DISORDER [None]
  - SLUGGISHNESS [None]
